FAERS Safety Report 4451902-1 (Version None)
Quarter: 2004Q3

REPORT INFORMATION
  Report Type: 
  Country: None (occurrence: None)
  Receive Date: 20040917
  Receipt Date: 20040907
  Transmission Date: 20050211
  Serious: Yes (Other)
  Sender: FDA-Public Use
  Company Number: AT-JNJFOC-20040809686

PATIENT
  Sex: Female
  Weight: 58 kg

DRUGS (2)
  1. REMICADE [Suspect]
     Indication: CROHN'S DISEASE
     Dosage: 3 INFUSIONS
     Route: 042
  2. AZATHIOPRINE [Concomitant]
     Indication: CROHN'S DISEASE
     Route: 049

REACTIONS (12)
  - ABDOMINAL PAIN UPPER [None]
  - ASCITES [None]
  - CHEST PAIN [None]
  - CHEST X-RAY ABNORMAL [None]
  - DIFFUSE LARGE B-CELL LYMPHOMA [None]
  - FIBROCYSTIC BREAST DISEASE [None]
  - GRANULOMA [None]
  - HEPATOMEGALY [None]
  - LIVER ABSCESS [None]
  - METASTASES TO LIVER [None]
  - METASTASES TO LUNG [None]
  - SPLENOMEGALY [None]
